FAERS Safety Report 14957434 (Version 1)
Quarter: 2018Q2

REPORT INFORMATION
  Report Type: Spontaneous
  Country: US (occurrence: US)
  Receive Date: 20180531
  Receipt Date: 20180531
  Transmission Date: 20180711
  Serious: Yes (Other)
  Sender: FDA-Public Use
  Company Number: US-QILU PHARMACEUTICAL CO.LTD.-QLU-000422-2018

PATIENT
  Age: 60 Year
  Sex: Male

DRUGS (2)
  1. CEFEPIME HYDROCHLORIDE. [Suspect]
     Active Substance: CEFEPIME HYDROCHLORIDE
     Indication: PRODUCT USED FOR UNKNOWN INDICATION
     Dosage: UNK
     Route: 065
  2. FUROSEMIDE. [Suspect]
     Active Substance: FUROSEMIDE
     Indication: PRODUCT USED FOR UNKNOWN INDICATION
     Dosage: UNK
     Route: 065

REACTIONS (9)
  - Acute generalised exanthematous pustulosis [Recovered/Resolved]
  - Leukocytosis [Recovered/Resolved]
  - Skin exfoliation [Recovered/Resolved]
  - Subcorneal pustular dermatosis [Recovered/Resolved]
  - Dermatitis [Recovered/Resolved]
  - Rash [Recovered/Resolved]
  - Rash pustular [Recovered/Resolved]
  - Generalised oedema [Recovered/Resolved]
  - Dermatitis exfoliative generalised [Recovered/Resolved]
